FAERS Safety Report 12704110 (Version 1)
Quarter: 2016Q3

REPORT INFORMATION
  Report Type: Spontaneous
  Country: DE (occurrence: DE)
  Receive Date: 20160831
  Receipt Date: 20160831
  Transmission Date: 20161109
  Serious: Yes (Other)
  Sender: FDA-Public Use
  Company Number: DE-TEVA-687182GER

PATIENT

DRUGS (1)
  1. PENTOXIFYLLIN-RATIOPHARM 300 MG/15 ML KONZENTRAT ZUR HERSTELLUNG EINER [Suspect]
     Active Substance: PENTOXIFYLLINE
     Indication: SUDDEN HEARING LOSS
     Route: 042
     Dates: start: 2016

REACTIONS (4)
  - Circulatory collapse [Unknown]
  - Nausea [Unknown]
  - Incorrect drug administration rate [Unknown]
  - Vomiting [Unknown]

NARRATIVE: CASE EVENT DATE: 2016
